FAERS Safety Report 4919847-8 (Version None)
Quarter: 2006Q1

REPORT INFORMATION
  Report Type: 
  Country: None (occurrence: None)
  Receive Date: 20060221
  Receipt Date: 20060221
  Transmission Date: 20060701
  Serious: Yes (Hospitalization)
  Sender: FDA-Public Use
  Company Number: None

PATIENT
  Sex: Male
  Weight: 111.4 kg

DRUGS (3)
  1. FLUOROURACIL [Suspect]
     Indication: COLON CANCER
     Dosage: 4440 MG
     Dates: end: 20060131
  2. LEUCOVORIN CALCIUM [Suspect]
     Dosage: 800 MG
     Dates: end: 20060131
  3. ELOXATIN [Suspect]
     Dosage: 130 MG
     Dates: end: 20060131

REACTIONS (2)
  - DEEP VEIN THROMBOSIS [None]
  - PULMONARY EMBOLISM [None]
